FAERS Safety Report 12507496 (Version 1)
Quarter: 2016Q2

REPORT INFORMATION
  Report Type: Spontaneous
  Country: US (occurrence: None)
  Receive Date: 20160628
  Receipt Date: 20160628
  Transmission Date: 20160815
  Serious: Yes (Disabling)
  Sender: FDA-Public Use
  Company Number: None

PATIENT
  Age: 41 Year
  Sex: Female
  Weight: 97.98 kg

DRUGS (1)
  1. MIRENA [Suspect]
     Active Substance: LEVONORGESTREL
     Indication: CONTRACEPTION

REACTIONS (9)
  - Impaired work ability [None]
  - Diplopia [None]
  - Ocular discomfort [None]
  - Vision blurred [None]
  - Visual impairment [None]
  - Angiopathy [None]
  - Blindness transient [None]
  - Photophobia [None]
  - Eye pain [None]

NARRATIVE: CASE EVENT DATE: 20090901
